FAERS Safety Report 24433617 (Version 1)
Quarter: 2024Q4

REPORT INFORMATION
  Report Type: Spontaneous
  Country: CN (occurrence: CN)
  Receive Date: 20241014
  Receipt Date: 20241014
  Transmission Date: 20250114
  Serious: Yes (Hospitalization)
  Sender: NOVARTIS
  Company Number: CN-002147023-NVSC2024CN200872

PATIENT
  Age: 18 Year
  Sex: Male

DRUGS (2)
  1. TEGRETOL [Suspect]
     Active Substance: CARBAMAZEPINE
     Indication: Neuropathy peripheral
     Dosage: 0.100 G, BID
     Route: 048
     Dates: start: 20240725, end: 20240728
  2. TEGRETOL [Suspect]
     Active Substance: CARBAMAZEPINE
     Indication: Myotonia
     Dosage: 0.200 G, BID
     Route: 048
     Dates: start: 20240729, end: 20240809

REACTIONS (8)
  - Dermatitis exfoliative [Recovering/Resolving]
  - Rash [Recovering/Resolving]
  - Pruritus [Recovering/Resolving]
  - Hyperpyrexia [Recovering/Resolving]
  - Oropharyngeal pain [Recovering/Resolving]
  - Purulent discharge [Recovering/Resolving]
  - Erythema [Recovering/Resolving]
  - Pustule [Recovering/Resolving]

NARRATIVE: CASE EVENT DATE: 20240806
